FAERS Safety Report 5795591-2 (Version None)
Quarter: 2008Q2

REPORT INFORMATION
  Report Type: 
  Country: None (occurrence: None)
  Receive Date: 20080630
  Receipt Date: 20080619
  Transmission Date: 20081010
  Serious: Yes (Death)
  Sender: FDA-Public Use
  Company Number: KR-PFIZER INC-2008051859

PATIENT
  Age: 56 Year
  Sex: Male

DRUGS (7)
  1. SU-011,248 [Suspect]
     Indication: NON-SMALL CELL LUNG CANCER
     Route: 048
  2. TRIDOL [Concomitant]
     Indication: PAIN
     Dosage: DAILY DOSE:50MG
     Route: 048
  3. MAGNESIUM OXIDE [Concomitant]
     Indication: ANTACID THERAPY
     Dosage: DAILY DOSE:500MG
     Route: 048
     Dates: start: 20071211, end: 20080106
  4. MAGNESIUM OXIDE [Concomitant]
     Indication: LAXATIVE SUPPORTIVE CARE
  5. MEGACE [Concomitant]
     Indication: ANOREXIA
     Dosage: DAILY DOSE:20ML
     Route: 048
     Dates: start: 20071211, end: 20080106
  6. NORVASC [Concomitant]
     Indication: HYPERTENSION
     Dosage: DAILY DOSE:5MG
     Route: 048
  7. ACETYLCYSTEINE [Concomitant]
     Dosage: DAILY DOSE:200MG
     Route: 048
     Dates: start: 20071221, end: 20080106

REACTIONS (1)
  - CEREBRAL HAEMORRHAGE [None]
